FAERS Safety Report 6511407-0 (Version None)
Quarter: 2009Q4

REPORT INFORMATION
  Report Type: 
  Country: None (occurrence: None)
  Receive Date: 20091222
  Receipt Date: 20090311
  Transmission Date: 20100525
  Serious: No
  Sender: FDA-Public Use
  Company Number: US-ASTRAZENECA-2009UW06478

PATIENT
  Age: 76 Year
  Sex: Female
  Weight: 70.3 kg

DRUGS (6)
  1. CRESTOR [Suspect]
     Route: 048
     Dates: start: 20090305
  2. CARVEDILOL [Concomitant]
  3. METFORMIN HCL [Concomitant]
  4. BENICAR [Concomitant]
  5. LOPID [Concomitant]
  6. SIMVASTATIN [Concomitant]

REACTIONS (2)
  - ERYTHEMA [None]
  - PRURITUS GENERALISED [None]
